FAERS Safety Report 4367475-8 (Version None)
Quarter: 2004Q2

REPORT INFORMATION
  Report Type: 
  Country: None (occurrence: None)
  Receive Date: 20040520
  Receipt Date: 20040505
  Transmission Date: 20050107
  Serious: Yes (Life-Threatening, Hospitalization)
  Sender: FDA-Public Use
  Company Number: ZLBIGIV/04/15/USA

PATIENT

DRUGS (2)
  1. CARIMUNE [Suspect]
     Indication: KAWASAKI'S DISEASE
     Dosage: 2 G/KG B.W., ONCE, I.V.
     Route: 042
     Dates: start: 20020702, end: 20020702
  2. ASPIRIN [Concomitant]

REACTIONS (1)
  - PYREXIA [None]
